FAERS Safety Report 16708065 (Version 1)
Quarter: 2019Q3

REPORT INFORMATION
  Report Type: Spontaneous
  Country: US (occurrence: US)
  Receive Date: 20190815
  Receipt Date: 20190815
  Transmission Date: 20191004
  Serious: No
  Sender: FDA-Public Use
  Company Number: US-ELI_LILLY_AND_COMPANY-US201908001638

PATIENT
  Sex: Male

DRUGS (2)
  1. TALTZ [Suspect]
     Active Substance: IXEKIZUMAB
     Indication: PSORIATIC ARTHROPATHY
     Dosage: 160 MG, UNKNOWN
     Route: 065
     Dates: start: 201907
  2. TALTZ [Suspect]
     Active Substance: IXEKIZUMAB
     Dosage: 1-80 MG, 4/W
     Route: 065

REACTIONS (1)
  - Injection site reaction [Unknown]
